FAERS Safety Report 6736006-7 (Version None)
Quarter: 2010Q2

REPORT INFORMATION
  Report Type: 
  Country: None (occurrence: None)
  Receive Date: 20100521
  Receipt Date: 20100513
  Transmission Date: 20101027
  Serious: Yes (Hospitalization)
  Sender: FDA-Public Use
  Company Number: IT-ELI_LILLY_AND_COMPANY-IT201004005086

PATIENT
  Sex: Female

DRUGS (4)
  1. BYETTA [Suspect]
     Dosage: 5 UG, DAILY (1/D)
     Route: 058
     Dates: start: 20100316, end: 20100301
  2. BYETTA [Suspect]
     Dosage: 10 UG, DAILY (1/D)
     Route: 058
  3. METFORMIN HCL [Concomitant]
     Dosage: 3000 MG, UNKNOWN
     Route: 048
     Dates: start: 20070101
  4. GLIBOMET [Concomitant]
     Dosage: 7.5 MG, UNKNOWN
     Route: 048
     Dates: start: 20070101

REACTIONS (2)
  - HOSPITALISATION [None]
  - VOMITING [None]
